FAERS Safety Report 6886009-7 (Version None)
Quarter: 2010Q3

REPORT INFORMATION
  Report Type: 
  Country: None (occurrence: None)
  Receive Date: 20100729
  Receipt Date: 20080816
  Transmission Date: 20110219
  Serious: No
  Sender: FDA-Public Use
  Company Number: US-PFIZER INC-2008058850

PATIENT
  Sex: Female
  Weight: 87.7 kg

DRUGS (10)
  1. CELEBREX [Suspect]
     Indication: OSTEOARTHRITIS
     Route: 048
  2. CELEBREX [Suspect]
     Indication: FIBROMYALGIA
  3. CELEBREX [Suspect]
     Indication: FIBROUS DYSPLASIA OF BONE
  4. PREMARIN [Concomitant]
  5. NEURONTIN [Concomitant]
  6. LUNESTA [Concomitant]
  7. DARVOCET [Concomitant]
  8. BACLOFEN [Concomitant]
  9. OXYCONTIN [Concomitant]
  10. LEXAPRO [Concomitant]

REACTIONS (1)
  - DRUG INEFFECTIVE [None]
